FAERS Safety Report 7014272-0 (Version None)
Quarter: 2010Q3

REPORT INFORMATION
  Report Type: 
  Country: None (occurrence: None)
  Receive Date: 20100927
  Receipt Date: 20100917
  Transmission Date: 20110219
  Serious: Yes (Other)
  Sender: FDA-Public Use
  Company Number: JP-ASTRAZENECA-2010SE41126

PATIENT
  Age: 19064 Day
  Sex: Male
  Weight: 73 kg

DRUGS (2)
  1. CRESTOR [Suspect]
     Indication: DYSLIPIDAEMIA
     Route: 048
     Dates: start: 20091006, end: 20100330
  2. ACTOS [Concomitant]
     Route: 048
     Dates: start: 20081206

REACTIONS (1)
  - DIABETES MELLITUS [None]
